FAERS Safety Report 5002939-5 (Version None)
Quarter: 2006Q2

REPORT INFORMATION
  Report Type: 
  Country: None (occurrence: None)
  Receive Date: 20060516
  Receipt Date: 20060512
  Transmission Date: 20061013
  Serious: Yes (Life-Threatening, Hospitalization, Disabling, Other)
  Sender: FDA-Public Use
  Company Number: US-GLAXOSMITHKLINE-A0605437A

PATIENT
  Age: 58 Year
  Sex: Female

DRUGS (5)
  1. ZOFRAN [Suspect]
     Indication: PROPHYLAXIS OF NAUSEA AND VOMITING
     Dosage: 24MG SINGLE DOSE
     Route: 042
  2. ZOFRAN [Suspect]
     Dosage: 8MG TWICE PER DAY
     Route: 048
  3. FLUOROURACIL [Concomitant]
  4. CISPLATIN [Concomitant]
  5. LEUCOVORIN [Concomitant]

REACTIONS (2)
  - CONVULSION [None]
  - MALIGNANT HYPERTENSION [None]
